FAERS Safety Report 17670615 (Version 1)
Quarter: 2020Q2

REPORT INFORMATION
  Report Type: Spontaneous
  Country: FR (occurrence: FR)
  Receive Date: 20200415
  Receipt Date: 20200415
  Transmission Date: 20200713
  Serious: Yes (Hospitalization)
  Sender: FDA-Public Use
  Company Number: FR-009507513-2004FRA003898

PATIENT
  Age: 26 Day
  Sex: Male
  Weight: 5.3 kg

DRUGS (3)
  1. ISENTRESS [Suspect]
     Active Substance: RALTEGRAVIR POTASSIUM
     Indication: HIV TEST POSITIVE
     Dosage: 6 MG/KG 2/DAY
     Route: 048
     Dates: start: 20200115
  2. RETROVIR [Suspect]
     Active Substance: ZIDOVUDINE
     Indication: HIV TEST POSITIVE
     Dosage: [05/02-10/03]34 MG/DAY; [10/03-] 54MG/DAY
     Route: 048
     Dates: start: 20200115, end: 20200205
  3. EPIVIR [Suspect]
     Active Substance: LAMIVUDINE
     Indication: HIV TEST POSITIVE
     Dosage: [10/01-15/01]: 6 MG PER DAY; [15/01-05/02] 4 MG/KG/DAY; [05/02-10/03] 17 MG/DAY; [10/03-] 27MG/DAY
     Route: 048
     Dates: start: 20200110

REACTIONS (1)
  - Metabolic acidosis [Recovering/Resolving]

NARRATIVE: CASE EVENT DATE: 20200205
